FAERS Safety Report 19679838 (Version 2)
Quarter: 2021Q3

REPORT INFORMATION
  Report Type: Spontaneous
  Country: FR (occurrence: FR)
  Receive Date: 20210810
  Receipt Date: 20210901
  Transmission Date: 20211014
  Serious: Yes (Other)
  Sender: FDA-Public Use
  Company Number: FR-ACCORD-234742

PATIENT
  Age: 16 Year
  Sex: Female

DRUGS (10)
  1. CYTARABINE/CYTARABINE HYDROCHLORIDE/CYTARABINE OCFOSFATE [Suspect]
     Active Substance: CYTARABINE
     Indication: PRECURSOR T-LYMPHOBLASTIC LYMPHOMA/LEUKAEMIA
     Dosage: 100 MG / DAY IV IN 4 TREATMENT OF 4 DAYS AND 30 MG INTRATHECAL ON 09/04 AND 21/05
     Route: 051
     Dates: start: 20210409, end: 20210603
  2. CYCLOPHOSPHAMIDE/CYCLOPHOSPHAMIDE MONOHYDRATE [Suspect]
     Active Substance: CYCLOPHOSPHAMIDE
     Indication: PRECURSOR T-LYMPHOBLASTIC LYMPHOMA/LEUKAEMIA
     Dosage: 1560 MG ON 07/04 AND 1580 MG ON 19/05
     Route: 042
     Dates: start: 20210407, end: 20210519
  3. MERCAPTOPURINE/MERCAPTOPURINE ANHYDROUS [Suspect]
     Active Substance: MERCAPTOPURINE
     Indication: PRECURSOR T-LYMPHOBLASTIC LYMPHOMA/LEUKAEMIA
     Dosage: 95 MG / DAY IN CYCLES OF 4 DAYS
     Route: 048
     Dates: start: 20210407, end: 20210604
  4. PRIMPERAN [Concomitant]
     Active Substance: METOCLOPRAMIDE HYDROCHLORIDE
     Indication: PROPHYLAXIS OF NAUSEA AND VOMITING
     Dosage: STRENGTH: 10MG, SCORED TABLETS
     Route: 048
     Dates: end: 20210528
  5. VINCRISTINE [Suspect]
     Active Substance: VINCRISTINE
     Indication: PRECURSOR T-LYMPHOBLASTIC LYMPHOMA/LEUKAEMIA
     Dosage: 2 MG ON 05/05; 12/05; 10/06 AND 17/06
     Route: 042
     Dates: start: 20210505, end: 20210617
  6. ENANTONE LP [Suspect]
     Active Substance: LEUPROLIDE ACETATE
     Indication: CONTRACEPTION
     Dosage: 11.25 MG, MICROSPHERES AND SOLUTION FOR PARENTERAL (SC OR IM) PROLONGED?RELEASE USE
     Route: 058
     Dates: start: 20210407
  7. HYDROCORTISONE. [Suspect]
     Active Substance: HYDROCORTISONE
     Indication: PRECURSOR T-LYMPHOBLASTIC LYMPHOMA/LEUKAEMIA
     Dosage: 15 MG ON 09/04 AND 21/05
     Route: 037
     Dates: start: 20210409, end: 20210521
  8. PLITICAN [Suspect]
     Active Substance: ALIZAPRIDE HYDROCHLORIDE
     Indication: PROPHYLAXIS OF NAUSEA AND VOMITING
     Dosage: 100 MILLIGRAM, QD
     Route: 042
     Dates: start: 20210407, end: 20210706
  9. METHOTREXATE. [Suspect]
     Active Substance: METHOTREXATE
     Indication: PRECURSOR T-LYMPHOBLASTIC LYMPHOMA/LEUKAEMIA
     Dosage: 15 MG ON 09/04 AND 21/05
     Route: 037
     Dates: start: 20210409, end: 20210521
  10. ASPARAGINASE [Suspect]
     Active Substance: ASPARAGINASE
     Indication: PRECURSOR T-LYMPHOBLASTIC LYMPHOMA/LEUKAEMIA
     Dosage: 3950 IU ON 05/05 AND 3900 IU ON 10/06
     Route: 042
     Dates: start: 20210505, end: 20210610

REACTIONS (1)
  - Cholestasis [Recovered/Resolved]

NARRATIVE: CASE EVENT DATE: 20210528
